FAERS Safety Report 4631181-2 (Version None)
Quarter: 2005Q2

REPORT INFORMATION
  Report Type: 
  Country: None (occurrence: None)
  Receive Date: 20050406
  Receipt Date: 20050321
  Transmission Date: 20051028
  Serious: Yes (Hospitalization, Other)
  Sender: FDA-Public Use
  Company Number: 172308

PATIENT
  Age: 40 Year
  Sex: Female
  Weight: 86.1834 kg

DRUGS (3)
  1. AVONEX [Suspect]
     Indication: MULTIPLE SCLEROSIS
     Dosage: 30 UG QW IM
     Route: 030
     Dates: start: 20010401, end: 20021216
  2. COUMADIN [Concomitant]
  3. VALIUM [Concomitant]

REACTIONS (3)
  - HEPATIC NECROSIS [None]
  - HEPATITIS [None]
  - PULMONARY EMBOLISM [None]
